FAERS Safety Report 6425569-7 (Version None)
Quarter: 2009Q4

REPORT INFORMATION
  Report Type: 
  Country: None (occurrence: None)
  Receive Date: 20091103
  Receipt Date: 20091027
  Transmission Date: 20100525
  Serious: Yes (Other)
  Sender: FDA-Public Use
  Company Number: US-PFIZER INC-2009178651

PATIENT
  Sex: Female

DRUGS (1)
  1. GEODON [Suspect]
     Indication: HALLUCINATION, AUDITORY
     Dosage: 180MG/DAY
     Route: 048

REACTIONS (5)
  - ARRHYTHMIA [None]
  - CARDIAC PACEMAKER INSERTION [None]
  - ELECTROCARDIOGRAM QT PROLONGED [None]
  - INCORRECT DOSE ADMINISTERED [None]
  - VENTRICULAR TACHYCARDIA [None]
